FAERS Safety Report 13736954 (Version 1)
Quarter: 2017Q3

REPORT INFORMATION
  Report Type: Spontaneous
  Country: FR (occurrence: FR)
  Receive Date: 20170710
  Receipt Date: 20170710
  Transmission Date: 20171127
  Serious: Yes (Hospitalization)
  Sender: FDA-Public Use
  Company Number: FR-PFIZER INC-2017291592

PATIENT
  Age: 62 Year
  Sex: Male

DRUGS (3)
  1. INEXIUM /01479302/ [Suspect]
     Active Substance: ESOMEPRAZOLE MAGNESIUM
     Dosage: UNK
     Route: 048
     Dates: start: 20170606, end: 20170607
  2. BRILIQUE [Suspect]
     Active Substance: TICAGRELOR
     Dosage: UNK
     Route: 048
     Dates: start: 20170606, end: 20170608
  3. TAHOR [Suspect]
     Active Substance: ATORVASTATIN CALCIUM
     Dosage: UNK
     Route: 048
     Dates: start: 20170606, end: 20170608

REACTIONS (5)
  - Electrocardiogram ST segment elevation [Unknown]
  - Urticaria [Recovered/Resolved]
  - Chest pain [Unknown]
  - Eyelid oedema [Recovered/Resolved]
  - Lip oedema [Recovered/Resolved]

NARRATIVE: CASE EVENT DATE: 20170606
